FAERS Safety Report 8830740 (Version 1)
Quarter: 2012Q4

REPORT INFORMATION
  Report Type: 
  Country: PT (occurrence: PT)
  Receive Date: 20121009
  Receipt Date: 20121009
  Transmission Date: 20130627
  Serious: Yes (Other)
  Sender: FDA-Public Use
  Company Number: PT-JNJFOC-20120913234

PATIENT
  Age: 18 Year
  Sex: Male

DRUGS (1)
  1. INFLIXIMAB [Suspect]
     Indication: ANKYLOSING SPONDYLITIS
     Route: 042
     Dates: start: 200510, end: 200808

REACTIONS (5)
  - Lumbar spinal stenosis [Recovering/Resolving]
  - Diarrhoea [Unknown]
  - Ankylosing spondylitis [Recovering/Resolving]
  - Conjunctivitis viral [Unknown]
  - Enterobacter infection [Recovered/Resolved]
